FAERS Safety Report 26007012 (Version 2)
Quarter: 2025Q4

REPORT INFORMATION
  Report Type: Spontaneous
  Country: BR (occurrence: BR)
  Receive Date: 20251106
  Receipt Date: 20251107
  Transmission Date: 20260117
  Serious: Yes (Disabling)
  Sender: NOVARTIS
  Company Number: BR-002147023-NVSC2025BR158916

PATIENT
  Age: 53 Year
  Sex: Female
  Weight: 98 kg

DRUGS (3)
  1. COSENTYX [Suspect]
     Active Substance: SECUKINUMAB
     Indication: Psoriatic arthropathy
     Dosage: 150 MG (150 MG/ML INJECTABLE SOLUTION CARTRIDGE 1 FILLED SYRINGE CLEAR GLASS X 1 ML + 1 APPLICATION
     Route: 065
  2. COSENTYX [Suspect]
     Active Substance: SECUKINUMAB
     Indication: Spondylitis
  3. LEFLUNOMIDE [Concomitant]
     Active Substance: LEFLUNOMIDE
     Dosage: 1 DOSAGE FORM, QD
     Route: 065

REACTIONS (15)
  - Rheumatic disorder [Unknown]
  - Needle issue [Unknown]
  - Product leakage [Unknown]
  - Accidental exposure to product [Recovered/Resolved]
  - Pain [Recovered/Resolved]
  - Fear [Unknown]
  - Feeling abnormal [Unknown]
  - Decreased immune responsiveness [Unknown]
  - Condition aggravated [Unknown]
  - Gait inability [Unknown]
  - Product dose omission issue [Recovered/Resolved]
  - Nervousness [Unknown]
  - Pain in extremity [Unknown]
  - Illness [Unknown]
  - Anxiety [Unknown]

NARRATIVE: CASE EVENT DATE: 20250901
